FAERS Safety Report 14211010 (Version 1)
Quarter: 2017Q4

REPORT INFORMATION
  Report Type: Spontaneous
  Country: BG (occurrence: BG)
  Receive Date: 20171121
  Receipt Date: 20171121
  Transmission Date: 20180321
  Serious: Yes (Hospitalization)
  Sender: FDA-Public Use
  Company Number: BG-BAUSCH-BL-2017-031572

PATIENT
  Sex: Female

DRUGS (1)
  1. LUXFEN [Suspect]
     Active Substance: BRIMONIDINE TARTRATE
     Indication: INTRAOCULAR PRESSURE INCREASED
     Route: 065

REACTIONS (2)
  - Blepharospasm [Recovering/Resolving]
  - Iridocyclitis [Recovering/Resolving]
